FAERS Safety Report 26001066 (Version 3)
Quarter: 2025Q4

REPORT INFORMATION
  Report Type: Report from Study
  Country: US (occurrence: US)
  Receive Date: 20251105
  Receipt Date: 20251205
  Transmission Date: 20260118
  Serious: Yes (Death, Other)
  Sender: ALEXION PHARMACEUTICALS
  Company Number: US-AstraZeneca-CH-00986022A

PATIENT
  Age: 71 Year
  Sex: Female
  Weight: 116 kg

DRUGS (1)
  1. DAPAGLIFLOZIN [Suspect]
     Active Substance: DAPAGLIFLOZIN
     Dosage: 10 MG , DAILY

REACTIONS (9)
  - Death [Fatal]
  - Pulmonary oedema [Unknown]
  - Acute kidney injury [Unknown]
  - Respiratory failure [Unknown]
  - Mitral valve stenosis [Unknown]
  - Atrial fibrillation [Unknown]
  - Hypertension [Unknown]
  - Diabetes mellitus [Unknown]
  - Retinal artery occlusion [Unknown]

NARRATIVE: CASE EVENT DATE: 20250913
